FAERS Safety Report 14343246 (Version 5)
Quarter: 2018Q2

REPORT INFORMATION
  Report Type: Spontaneous
  Country: GB (occurrence: GB)
  Receive Date: 20180102
  Receipt Date: 20180517
  Transmission Date: 20180711
  Serious: Yes (Other)
  Sender: FDA-Public Use
  Company Number: GB-PFIZER INC-2017552589

PATIENT
  Age: 73 Year
  Sex: Female
  Weight: 50.2 kg

DRUGS (16)
  1. BACTERIOSTATIC SODIUM CHLORIDE [Suspect]
     Active Substance: SODIUM CHLORIDE
     Indication: MEDICATION DILUTION
     Dosage: 1 UNIT DOSE, CYCLIC (DAY 1 OF CYCLE 2, VMP REGIMEN, COMPOUNDED WITH BORTEZOMIB)
     Dates: start: 20171103, end: 20171103
  2. BACTERIOSTATIC SODIUM CHLORIDE [Suspect]
     Active Substance: SODIUM CHLORIDE
     Dosage: 1 UNIT DOSE, CYCLIC (DAY 8 OF CYCLE 2, VMP REGIMEN, COMPOUNDED WITH BORTEZOMIB)
     Dates: start: 20171110, end: 20171110
  3. PREDNISONE. [Suspect]
     Active Substance: PREDNISONE
     Dosage: 70 MG, 1X/DAY DAILY (DAY 1 TO 4, CYCLE 2, VMP REGIMEN)
     Dates: start: 20171103, end: 20171106
  4. RAMIPRIL. [Concomitant]
     Active Substance: RAMIPRIL
     Dosage: 10 MG, OM (EVERY MORNING)
  5. VELCADE [Suspect]
     Active Substance: BORTEZOMIB
     Indication: PLASMA CELL LEUKAEMIA
     Dosage: 1 UNIT DOSE, CYCLIC (CYCLE 1, VMP REGIMEN)
     Route: 058
     Dates: start: 2017, end: 2017
  6. VELCADE [Suspect]
     Active Substance: BORTEZOMIB
     Dosage: 1.3 MG/M2, CYCLIC (DAY 1 OF CYCLE 2, VMP REGIMEN, COMPOUNDED WITH SODIUM CHLORIDE)
     Route: 058
     Dates: start: 20171103, end: 20171103
  7. PREDNISONE. [Suspect]
     Active Substance: PREDNISONE
     Indication: PLASMA CELL LEUKAEMIA
     Dosage: 1 UNIT DOSE, CYCLIC (VMP REGIMEN)
  8. MELPHALAN. [Suspect]
     Active Substance: MELPHALAN
     Dosage: 14 MG, 1X/DAY (DAY 1 TO 4, CYCLE 2, VMP REGIMEN)
     Route: 065
     Dates: start: 20171103, end: 20171106
  9. BACTERIOSTATIC SODIUM CHLORIDE [Suspect]
     Active Substance: SODIUM CHLORIDE
     Dosage: 1 UNIT DOSE, CYCLIC (DAY 4 OF CYCLE 2, VMP REGIMEN, COMPOUNDED WITH BORTEZOMIB)
     Dates: start: 20171106, end: 20171106
  10. BENDROFLUMETHIAZIDE [Concomitant]
     Active Substance: BENDROFLUMETHIAZIDE
     Dosage: 2.5 MG, OM (EVERY MORNING)
  11. METOCLOPRAMIDE. [Concomitant]
     Active Substance: METOCLOPRAMIDE
     Dosage: 10 MG, AS NEEDED (QDS PRN)
  12. VELCADE [Suspect]
     Active Substance: BORTEZOMIB
     Dosage: 1.3 MG/M2, CYCLIC (DAY 8 OF CYCLE 2, VMP REGIMEN, COMPOUNDED WITH SODIUM CHLORIDE)
     Route: 058
     Dates: start: 20171110, end: 20171110
  13. MELPHALAN. [Suspect]
     Active Substance: MELPHALAN
     Indication: PLASMA CELL LEUKAEMIA
     Dosage: 1 UNIT DOSE, CYCLIC (CYCLE 1, VMP REGIMEN)
     Route: 065
  14. OMEPRAZOLE. [Concomitant]
     Active Substance: OMEPRAZOLE
     Dosage: 20 MG, OM (EVERY MORNING)
  15. VELCADE [Suspect]
     Active Substance: BORTEZOMIB
     Dosage: 1.3 MG/M2, CYCLIC (DAY 4 OF CYCLE 2, VMP REGIMEN, COMPOUNDED WITH SODIUM CHLORIDE)
     Route: 058
     Dates: start: 20171106, end: 20171106
  16. SERTRALINE [Concomitant]
     Active Substance: SERTRALINE HYDROCHLORIDE
     Dosage: 50 MG, OM (EVERY MORNING)

REACTIONS (5)
  - Emotional distress [Not Recovered/Not Resolved]
  - Confusional state [Not Recovered/Not Resolved]
  - Abnormal behaviour [Not Recovered/Not Resolved]
  - Paranoia [Not Recovered/Not Resolved]
  - Agitation [Not Recovered/Not Resolved]

NARRATIVE: CASE EVENT DATE: 20171111
